FAERS Safety Report 25246032 (Version 1)
Quarter: 2025Q2

REPORT INFORMATION
  Report Type: Spontaneous
  Country: US (occurrence: US)
  Receive Date: 20250428
  Receipt Date: 20250428
  Transmission Date: 20250717
  Serious: Yes (Hospitalization, Other)
  Sender: ARDELYX
  Company Number: US-ARDELYX-2025ARDX001505

PATIENT
  Age: 43 Year
  Sex: Female

DRUGS (2)
  1. XPHOZAH [Suspect]
     Active Substance: TENAPANOR HYDROCHLORIDE
     Indication: Chronic kidney disease
     Route: 048
     Dates: start: 20241009
  2. LANTUS [Concomitant]
     Active Substance: INSULIN GLARGINE
     Indication: Product used for unknown indication
     Route: 065

REACTIONS (13)
  - Toe amputation [Unknown]
  - Postoperative wound infection [Unknown]
  - Sepsis [Unknown]
  - Leg amputation [Unknown]
  - Gastrointestinal obstruction [Unknown]
  - Complication associated with device [Unknown]
  - Nausea [Unknown]
  - Vomiting [Unknown]
  - Impaired gastric emptying [Unknown]
  - Gastrointestinal obstruction [Unknown]
  - Complication associated with device [Unknown]
  - Contraindicated product administered [Unknown]
  - Dehydration [Unknown]

NARRATIVE: CASE EVENT DATE: 20250110
